FAERS Safety Report 17903422 (Version 1)
Quarter: 2020Q2

REPORT INFORMATION
  Report Type: Spontaneous
  Country: US (occurrence: US)
  Receive Date: 20200616
  Receipt Date: 20200616
  Transmission Date: 20200714
  Serious: Yes (Hospitalization, Other)
  Sender: FDA-Public Use
  Company Number: US-FRESENIUS KABI-FK202005908

PATIENT
  Sex: Male

DRUGS (7)
  1. QUININE [Suspect]
     Active Substance: QUININE
     Indication: BABESIOSIS
     Dosage: UNKNOWN
     Route: 064
  2. AZITHROMYCIN (MANUFACTURER UNKNOWN) [Suspect]
     Active Substance: AZITHROMYCIN ANHYDROUS
     Indication: BABESIOSIS
     Dosage: UNKNOWN
     Route: 064
  3. AZITHROMYCIN (MANUFACTURER UNKNOWN) [Suspect]
     Active Substance: AZITHROMYCIN ANHYDROUS
     Dosage: 10 MG/KG/DAY ON DAY 1, AND THEN 5 MG/KG/DAY
     Route: 065
  4. CLINDAMYCIN. [Suspect]
     Active Substance: CLINDAMYCIN
     Indication: BABESIOSIS
     Dosage: UNKNOWN
     Route: 064
  5. AZITHROMYCIN (MANUFACTURER UNKNOWN) [Suspect]
     Active Substance: AZITHROMYCIN ANHYDROUS
     Route: 065
  6. ATOVAQUONE. [Suspect]
     Active Substance: ATOVAQUONE
     Indication: BABESIOSIS
     Dosage: UNKNOWN
     Route: 064
  7. ATOVAQUONE. [Suspect]
     Active Substance: ATOVAQUONE
     Dosage: DIVIDED EVERY 12H
     Route: 065

REACTIONS (2)
  - Acute myeloid leukaemia [Unknown]
  - Foetal exposure during pregnancy [Unknown]
